FAERS Safety Report 24888078 (Version 1)
Quarter: 2025Q1

REPORT INFORMATION
  Report Type: Spontaneous
  Country: US (occurrence: US)
  Receive Date: 20250127
  Receipt Date: 20250127
  Transmission Date: 20250409
  Serious: Yes (Other)
  Sender: Unknown Manufacturer
  Company Number: US-STALCOR-2025-AER-00221

PATIENT
  Age: 23 Year
  Sex: Female
  Weight: 79.38 kg

DRUGS (7)
  1. UNSPECIFIED INGREDIENT [Suspect]
     Active Substance: UNSPECIFIED INGREDIENT
     Indication: Asthma
     Route: 058
     Dates: start: 20240621
  2. UNSPECIFIED INGREDIENT [Suspect]
     Active Substance: UNSPECIFIED INGREDIENT
     Indication: Rhinitis allergic
  3. ALVESCO [Concomitant]
     Active Substance: CICLESONIDE
     Indication: Product used for unknown indication
     Route: 055
     Dates: start: 20240217
  4. SINGULAIR [Concomitant]
     Active Substance: MONTELUKAST SODIUM
     Indication: Product used for unknown indication
     Dosage: EVERY EVENING
     Route: 048
     Dates: start: 20240408
  5. ALBUTEROL (PROAIR/PROVENTIL/VENTOLIN) [Concomitant]
     Indication: Asthma
     Dosage: AS NEEDED FOR QUICK RELIEF OF ASTHMA SYMPTOMS
     Route: 055
     Dates: start: 20241118
  6. EPINEPHRINE (ADRENACLICK/EPIPEN) [Concomitant]
     Indication: Product used for unknown indication
  7. FLUTICASONE (FLONASE ALLERGY RELIEF) [Concomitant]
     Indication: Product used for unknown indication
     Dates: start: 20240205

REACTIONS (6)
  - Injection site pruritus [Recovered/Resolved]
  - Injection site pain [Recovered/Resolved]
  - Local reaction [Recovered/Resolved]
  - Throat irritation [Recovered/Resolved]
  - Chest discomfort [Recovered/Resolved]
  - Wheezing [Recovered/Resolved]

NARRATIVE: CASE EVENT DATE: 20241216
